FAERS Safety Report 5948266-0 (Version None)
Quarter: 2008Q4

REPORT INFORMATION
  Report Type: 
  Country: None (occurrence: None)
  Receive Date: 20081111
  Receipt Date: 20081031
  Transmission Date: 20090506
  Serious: Yes (Hospitalization)
  Sender: FDA-Public Use
  Company Number: JP-EISAI MEDIAL RESEARCH-E3810-02293-CLI-JP

PATIENT
  Sex: Male
  Weight: 59 kg

DRUGS (1)
  1. RABEPRAZOLE SODIUM [Suspect]
     Indication: REFLUX OESOPHAGITIS
     Route: 048
     Dates: start: 20081008, end: 20081019

REACTIONS (1)
  - HYPERAMMONAEMIA [None]
